FAERS Safety Report 24773052 (Version 1)
Quarter: 2024Q4

REPORT INFORMATION
  Report Type: Spontaneous
  Country: US (occurrence: US)
  Receive Date: 20241225
  Receipt Date: 20241225
  Transmission Date: 20250115
  Serious: Yes (Life-Threatening, Hospitalization, Other)
  Sender: ABBVIE
  Company Number: US-ABBVIE-6063175

PATIENT
  Sex: Male
  Weight: 6 kg

DRUGS (1)
  1. BOTOX [Suspect]
     Active Substance: ONABOTULINUMTOXINA
     Indication: Maternal exposure timing unspecified
     Dosage: TIME INTERVAL: AS NECESSARY: 10 UNITS?EVERY 1 TO 12 WEEKS
     Route: 064
     Dates: start: 20231016, end: 20231016

REACTIONS (5)
  - Cerebral infarction [Recovering/Resolving]
  - Nonreassuring foetal heart rate pattern [Recovered/Resolved]
  - Factor V Leiden mutation [Not Recovered/Not Resolved]
  - Peripheral artery thrombosis [Recovering/Resolving]
  - Foetal exposure during pregnancy [Unknown]

NARRATIVE: CASE EVENT DATE: 20240712
